FAERS Safety Report 7170533-6 (Version None)
Quarter: 2010Q4

REPORT INFORMATION
  Report Type: 
  Country: None (occurrence: None)
  Receive Date: 20101217
  Receipt Date: 20101205
  Transmission Date: 20110411
  Serious: Yes (Other)
  Sender: FDA-Public Use
  Company Number: DE-MYLANLABS-2010S1022200

PATIENT
  Age: 16 Year

DRUGS (1)
  1. METOPROLOL [Suspect]
     Indication: SUICIDE ATTEMPT
     Route: 048
     Dates: start: 20101205, end: 20101205

REACTIONS (2)
  - INTENTIONAL OVERDOSE [None]
  - SUICIDE ATTEMPT [None]
